FAERS Safety Report 24139168 (Version 1)
Quarter: 2024Q3

REPORT INFORMATION
  Report Type: Spontaneous
  Country: CO (occurrence: CO)
  Receive Date: 20240726
  Receipt Date: 20240726
  Transmission Date: 20241016
  Serious: Yes (Death, Life-Threatening, Hospitalization)
  Sender: MSN LABORATORIES
  Company Number: CO-MLMSERVICE-20240711-PI124403-00104-3

PATIENT

DRUGS (29)
  1. MOXIFLOXACIN [Suspect]
     Active Substance: MOXIFLOXACIN
     Indication: Pulmonary tuberculosis
     Route: 065
  2. AZITHROMYCIN [Suspect]
     Active Substance: AZITHROMYCIN
     Indication: Bone marrow failure
     Route: 065
  3. AZTREONAM [Suspect]
     Active Substance: AZTREONAM
     Indication: Escherichia bacteraemia
     Route: 065
  4. AZTREONAM [Suspect]
     Active Substance: AZTREONAM
     Indication: Stomatitis
  5. AZTREONAM [Suspect]
     Active Substance: AZTREONAM
     Indication: Vulvovaginal inflammation
  6. AZTREONAM [Suspect]
     Active Substance: AZTREONAM
     Indication: Staphylococcal bacteraemia
  7. AZTREONAM [Suspect]
     Active Substance: AZTREONAM
     Indication: Enterococcal bacteraemia
  8. AZTREONAM [Suspect]
     Active Substance: AZTREONAM
     Indication: Vulvovaginal inflammation
  9. AVIBACTAM SODIUM\CEFTAZIDIME [Suspect]
     Active Substance: AVIBACTAM SODIUM\CEFTAZIDIME
     Indication: Staphylococcal bacteraemia
     Route: 065
  10. AVIBACTAM SODIUM\CEFTAZIDIME [Suspect]
     Active Substance: AVIBACTAM SODIUM\CEFTAZIDIME
     Indication: Stomatitis
  11. AVIBACTAM SODIUM\CEFTAZIDIME [Suspect]
     Active Substance: AVIBACTAM SODIUM\CEFTAZIDIME
     Indication: Vulvovaginal inflammation
  12. AVIBACTAM SODIUM\CEFTAZIDIME [Suspect]
     Active Substance: AVIBACTAM SODIUM\CEFTAZIDIME
     Indication: Enterococcal bacteraemia
  13. AVIBACTAM SODIUM\CEFTAZIDIME [Suspect]
     Active Substance: AVIBACTAM SODIUM\CEFTAZIDIME
     Indication: Vulvovaginal inflammation
  14. AVIBACTAM SODIUM\CEFTAZIDIME [Suspect]
     Active Substance: AVIBACTAM SODIUM\CEFTAZIDIME
     Indication: Escherichia bacteraemia
  15. CEFTAROLINE FOSAMIL [Suspect]
     Active Substance: CEFTAROLINE FOSAMIL
     Indication: Vulvovaginal inflammation
     Route: 065
  16. CEFTAROLINE FOSAMIL [Suspect]
     Active Substance: CEFTAROLINE FOSAMIL
     Indication: Vulvovaginal inflammation
  17. CEFTAROLINE FOSAMIL [Suspect]
     Active Substance: CEFTAROLINE FOSAMIL
     Indication: Stomatitis
  18. CEFTAROLINE FOSAMIL [Suspect]
     Active Substance: CEFTAROLINE FOSAMIL
     Indication: Enterococcal bacteraemia
  19. CEFTAROLINE FOSAMIL [Suspect]
     Active Substance: CEFTAROLINE FOSAMIL
     Indication: Staphylococcal bacteraemia
  20. CEFTAROLINE FOSAMIL [Suspect]
     Active Substance: CEFTAROLINE FOSAMIL
     Indication: Escherichia bacteraemia
  21. CLINDAMYCIN [Suspect]
     Active Substance: CLINDAMYCIN
     Indication: Bone marrow failure
     Route: 065
  22. DOXYCYCLINE [Suspect]
     Active Substance: DOXYCYCLINE\DOXYCYCLINE HYCLATE
     Indication: Bone marrow failure
     Route: 065
  23. IVERMECTIN [Suspect]
     Active Substance: IVERMECTIN
     Indication: Bone marrow failure
     Route: 065
  24. AMPHOTERICIN B [Suspect]
     Active Substance: AMPHOTERICIN B
     Indication: Fungal infection
     Route: 065
  25. CYCLOPHOSPHAMIDE [Concomitant]
     Active Substance: CYCLOPHOSPHAMIDE
     Dosage: THREE DOSES
     Route: 065
  26. AZATHIOPRINE [Concomitant]
     Active Substance: AZATHIOPRINE
     Indication: Autoimmune haemolytic anaemia
     Route: 048
  27. RITUXIMAB [Concomitant]
     Active Substance: RITUXIMAB
     Dosage: FOUR DOSES
     Route: 065
  28. PREDNISOLONE [Concomitant]
     Active Substance: PREDNISOLONE
     Indication: Autoimmune haemolytic anaemia
     Route: 048
  29. METHYLPREDNISOLONE [Concomitant]
     Active Substance: METHYLPREDNISOLONE
     Dosage: HIGH-DOSE
     Route: 042

REACTIONS (1)
  - Treatment failure [Fatal]
